FAERS Safety Report 7572107-1 (Version None)
Quarter: 2011Q2

REPORT INFORMATION
  Report Type: 
  Country: None (occurrence: None)
  Receive Date: 20110624
  Receipt Date: 20110620
  Transmission Date: 20111010
  Serious: Yes (Other)
  Sender: FDA-Public Use
  Company Number: US-PFIZER INC-2011135722

PATIENT
  Sex: Male
  Weight: 68.027 kg

DRUGS (1)
  1. CELEBREX [Suspect]
     Dosage: UNK

REACTIONS (7)
  - HYPOTHERMIA [None]
  - ABDOMINAL PAIN UPPER [None]
  - HAEMATEMESIS [None]
  - HYPERSENSITIVITY [None]
  - NAUSEA [None]
  - BODY TEMPERATURE FLUCTUATION [None]
  - GASTROINTESTINAL HAEMORRHAGE [None]
